FAERS Safety Report 15406633 (Version 1)
Quarter: 2018Q3

REPORT INFORMATION
  Report Type: Spontaneous
  Country: US (occurrence: US)
  Receive Date: 20180920
  Receipt Date: 20180920
  Transmission Date: 20181010
  Serious: No
  Sender: FDA-Public Use
  Company Number: US-TEVA-2018-US-955142

PATIENT
  Sex: Female

DRUGS (1)
  1. BUPROPION. [Suspect]
     Active Substance: BUPROPION
     Route: 065
     Dates: start: 20180909

REACTIONS (6)
  - Pruritus [Unknown]
  - Lymphadenopathy [Unknown]
  - Allergic reaction to excipient [Unknown]
  - Pharyngeal oedema [Unknown]
  - Insomnia [Unknown]
  - Wound [Not Recovered/Not Resolved]

NARRATIVE: CASE EVENT DATE: 20180909
